FAERS Safety Report 12318030 (Version 1)
Quarter: 2016Q2

REPORT INFORMATION
  Report Type: Spontaneous
  Country: NO (occurrence: NO)
  Receive Date: 20160429
  Receipt Date: 20160429
  Transmission Date: 20160815
  Serious: Yes (Death)
  Sender: FDA-Public Use
  Company Number: NO-009507513-1604NOR018030

PATIENT
  Age: 51 Year
  Sex: Female

DRUGS (9)
  1. ACETAMINOPHEN. [Suspect]
     Active Substance: ACETAMINOPHEN
  2. PREGABALIN. [Suspect]
     Active Substance: PREGABALIN
  3. DIAZEPAM. [Suspect]
     Active Substance: DIAZEPAM
  4. OXAZEPAM. [Suspect]
     Active Substance: OXAZEPAM
  5. MIRTAZAPINE. [Suspect]
     Active Substance: MIRTAZAPINE
  6. QUETIAPINE FUMARATE. [Suspect]
     Active Substance: QUETIAPINE FUMARATE
  7. VENLAFAXINE HYDROCHLORIDE. [Suspect]
     Active Substance: VENLAFAXINE HYDROCHLORIDE
  8. ZOPICLONE [Suspect]
     Active Substance: ZOPICLONE
  9. CODEINE [Suspect]
     Active Substance: CODEINE

REACTIONS (1)
  - Toxicity to various agents [Fatal]
